FAERS Safety Report 17541022 (Version 1)
Quarter: 2020Q1

REPORT INFORMATION
  Report Type: Report from Study
  Country: CA (occurrence: CA)
  Receive Date: 20200313
  Receipt Date: 20200313
  Transmission Date: 20200409
  Serious: Yes (Other)
  Sender: FDA-Public Use
  Company Number: CA-TAKEDA-2019TUS022239

PATIENT
  Age: 68 Year
  Sex: Female

DRUGS (4)
  1. ZOMETA [Concomitant]
     Active Substance: ZOLEDRONIC ACID
     Dosage: UNK UNK, MONTHLY
     Route: 065
  2. ACYCLOVIR                          /00587301/ [Concomitant]
     Active Substance: ACYCLOVIR
     Dosage: UNK
     Route: 065
  3. IXAZOMIB [Suspect]
     Active Substance: IXAZOMIB
     Indication: PLASMA CELL MYELOMA
     Dosage: 3 MILLIGRAM
     Route: 048
     Dates: start: 20190307
  4. PREGABALIN. [Concomitant]
     Active Substance: PREGABALIN
     Dosage: UNK
     Route: 065

REACTIONS (2)
  - Off label use [Unknown]
  - Plasma cell myeloma [Unknown]
